FAERS Safety Report 8217560-5 (Version None)
Quarter: 2012Q1

REPORT INFORMATION
  Report Type: 
  Country: None (occurrence: None)
  Receive Date: 20120319
  Receipt Date: 20120319
  Transmission Date: 20120608
  Serious: No
  Sender: FDA-Public Use
  Company Number: None

PATIENT
  Age: 63 Year
  Sex: Female
  Weight: 79.378 kg

DRUGS (3)
  1. BUTRANS TRANSDERMAL SYSTEM [Concomitant]
     Dosage: 20MCG
     Route: 062
     Dates: start: 20111228, end: 20120316
  2. BUTRANS [Suspect]
     Indication: ARTHRALGIA
     Dosage: 5MCG
     Route: 062
     Dates: start: 20110615, end: 20111227
  3. BUTRANS [Suspect]
     Indication: BACK PAIN
     Dosage: 5MCG
     Route: 062
     Dates: start: 20110615, end: 20111227

REACTIONS (3)
  - PRODUCT MEASURED POTENCY ISSUE [None]
  - PRODUCT ADHESION ISSUE [None]
  - APPLICATION SITE RASH [None]
